FAERS Safety Report 9281792 (Version 3)
Quarter: 2013Q4

REPORT INFORMATION
  Report Type: Spontaneous
  Country: US (occurrence: US)
  Receive Date: 20130510
  Receipt Date: 20131104
  Transmission Date: 20140711
  Serious: Yes (Hospitalization)
  Sender: FDA-Public Use
  Company Number: US-B.I. PHARMACEUTICALS,INC./RIDGEFIELD-2013-BI-12705BP

PATIENT
  Sex: Female
  Weight: 100.7 kg

DRUGS (11)
  1. PRADAXA [Suspect]
     Indication: ANTICOAGULANT THERAPY
     Dosage: 300 MG
     Dates: start: 20110817, end: 20110824
  2. ALLOPURINOL [Concomitant]
     Dates: start: 2007
  3. CALCIUM [Concomitant]
     Dates: start: 2007
  4. CELEBREX [Concomitant]
     Dates: start: 2007, end: 201110
  5. COLCHICINE [Concomitant]
  6. DILTIAZEM [Concomitant]
     Dates: start: 2007, end: 2011
  7. K-DUR [Concomitant]
  8. LANSOPRAZOLE [Concomitant]
     Dates: start: 2008, end: 2011
  9. LASIX [Concomitant]
     Dates: start: 201102
  10. LORTAB [Concomitant]
  11. PRINIVIL [Concomitant]
     Dates: start: 201102

REACTIONS (3)
  - Upper gastrointestinal haemorrhage [Unknown]
  - Coagulopathy [Unknown]
  - Anaemia [Unknown]
